FAERS Safety Report 6337314-4 (Version None)
Quarter: 2009Q3

REPORT INFORMATION
  Report Type: 
  Country: None (occurrence: None)
  Receive Date: 20090828
  Receipt Date: 20090828
  Transmission Date: 20100115
  Serious: Yes (Other)
  Sender: FDA-Public Use
  Company Number: None

PATIENT
  Sex: Male
  Weight: 73.5734 kg

DRUGS (4)
  1. LENALIDOMIDE, 10 MG, CELGENE [Suspect]
     Indication: B-CELL SMALL LYMPHOCYTIC LYMPHOMA
     Dosage: 10 MG PO DAILY
     Route: 048
     Dates: start: 20090801
  2. LENALIDOMIDE, 10 MG, CELGENE [Suspect]
     Indication: B-CELL SMALL LYMPHOCYTIC LYMPHOMA
     Dosage: 10 MG PO DAILY
     Route: 048
     Dates: start: 20090808
  3. DEXAMETHASONE [Concomitant]
  4. ASPIRIN [Concomitant]

REACTIONS (5)
  - DYSPHAGIA [None]
  - LYMPH NODE PAIN [None]
  - LYMPHADENOPATHY [None]
  - POOR QUALITY SLEEP [None]
  - TUMOUR FLARE [None]
